FAERS Safety Report 5876999-3 (Version None)
Quarter: 2008Q3

REPORT INFORMATION
  Report Type: 
  Country: None (occurrence: None)
  Receive Date: 20080909
  Receipt Date: 20080909
  Transmission Date: 20090109
  Serious: Yes (Life-Threatening)
  Sender: FDA-Public Use
  Company Number: None

PATIENT
  Age: 10 Year
  Sex: Male
  Weight: 85.7298 kg

DRUGS (1)
  1. EFFEXOR XR [Suspect]
     Indication: DEPRESSION
     Dosage: 75 MG ONCE A DAY PO
     Route: 048
     Dates: start: 19980901, end: 20080901

REACTIONS (3)
  - CONTACT LENS INTOLERANCE [None]
  - DRY EYE [None]
  - PHOTOPSIA [None]
